FAERS Safety Report 6093859-6 (Version None)
Quarter: 2009Q1

REPORT INFORMATION
  Report Type: 
  Country: None (occurrence: None)
  Receive Date: 20090226
  Receipt Date: 20090220
  Transmission Date: 20090719
  Serious: Yes (Other)
  Sender: FDA-Public Use
  Company Number: US-PFIZER INC-2009173827

PATIENT
  Sex: Female
  Weight: 121.54 kg

DRUGS (8)
  1. LIPITOR [Suspect]
     Indication: BLOOD CHOLESTEROL
     Dosage: UNK
  2. METOPROLOL TARTRATE [Concomitant]
     Dosage: UNK
  3. LISINOPRIL [Concomitant]
     Dosage: UNK
  4. PRILOSEC [Concomitant]
     Dosage: UNK
  5. ACICLOVIR [Concomitant]
     Dosage: UNK
  6. DAPSONE [Concomitant]
     Dosage: UNK
  7. ATIVAN [Concomitant]
     Indication: NERVOUSNESS
     Dosage: UNK
  8. AMBIEN [Concomitant]
     Dosage: UNK

REACTIONS (2)
  - EXTRANODAL MARGINAL ZONE B-CELL LYMPHOMA (MALT TYPE) [None]
  - INSOMNIA [None]
